FAERS Safety Report 10628082 (Version 1)
Quarter: 2014Q4

REPORT INFORMATION
  Report Type: Spontaneous
  Country: US (occurrence: US)
  Receive Date: 20141205
  Receipt Date: 20141205
  Transmission Date: 20150529
  Serious: No
  Sender: FDA-Public Use
  Company Number: US-BRISTOL-MYERS SQUIBB COMPANY-20960886

PATIENT
  Age: 81 Year
  Sex: Male

DRUGS (12)
  1. COUMADIN [Suspect]
     Active Substance: WARFARIN SODIUM
  2. ZYLOPRIM [Concomitant]
     Active Substance: ALLOPURINOL
  3. ASPIRIN. [Concomitant]
     Active Substance: ASPIRIN
  4. NORVASC [Concomitant]
     Active Substance: AMLODIPINE BESYLATE
  5. LANOXIN [Concomitant]
     Active Substance: DIGOXIN
  6. COZAAR [Concomitant]
     Active Substance: LOSARTAN POTASSIUM
  7. SIMVASTATIN. [Concomitant]
     Active Substance: SIMVASTATIN
  8. GLUCOPHAGE [Concomitant]
     Active Substance: METFORMIN HYDROCHLORIDE
  9. KLOR-CON [Concomitant]
     Active Substance: POTASSIUM CHLORIDE
  10. ZEBETA [Concomitant]
     Active Substance: BISOPROLOL FUMARATE
  11. PROSCAR [Concomitant]
     Active Substance: FINASTERIDE
  12. LASIX [Concomitant]
     Active Substance: FUROSEMIDE

REACTIONS (1)
  - International normalised ratio fluctuation [Unknown]
